FAERS Safety Report 23617780 (Version 4)
Quarter: 2024Q3

REPORT INFORMATION
  Report Type: Spontaneous
  Country: US (occurrence: US)
  Receive Date: 20240311
  Receipt Date: 20240814
  Transmission Date: 20241017
  Serious: Yes (Other)
  Sender: SANOFI AVENTIS
  Company Number: US-SA-SAC20240311000217

PATIENT
  Age: 68 Year
  Sex: Female
  Weight: 61.2 kg

DRUGS (2)
  1. DUPIXENT [Suspect]
     Active Substance: DUPILUMAB
     Indication: Illness
     Dosage: 300 MG, QOW
     Route: 058
     Dates: start: 20220219
  2. DUPIXENT [Suspect]
     Active Substance: DUPILUMAB
     Indication: Chronic rhinosinusitis with nasal polyps

REACTIONS (10)
  - Deafness unilateral [Unknown]
  - Anosmia [Unknown]
  - COVID-19 [Recovering/Resolving]
  - Headache [Recovering/Resolving]
  - Nasal congestion [Recovering/Resolving]
  - Ear congestion [Recovering/Resolving]
  - Decreased appetite [Unknown]
  - Nasal dryness [Unknown]
  - Dry mouth [Unknown]
  - Polypectomy [Unknown]

NARRATIVE: CASE EVENT DATE: 20240701
